APPROVED DRUG PRODUCT: DEFERASIROX
Active Ingredient: DEFERASIROX
Strength: 360MG
Dosage Form/Route: TABLET;ORAL
Application: A211395 | Product #003 | TE Code: AB
Applicant: PHARMOBEDIENT CONSULTING LLC
Approved: Mar 22, 2024 | RLD: No | RS: No | Type: RX